FAERS Safety Report 6130764-0 (Version None)
Quarter: 2009Q1

REPORT INFORMATION
  Report Type: 
  Country: None (occurrence: None)
  Receive Date: 20090323
  Receipt Date: 20090309
  Transmission Date: 20090719
  Serious: Yes (Hospitalization)
  Sender: FDA-Public Use
  Company Number: FR-SEPTODONT200900051

PATIENT
  Age: 52 Year
  Sex: Female

DRUGS (3)
  1. SCANDONEST 3% PLAIN [Suspect]
     Indication: LOCAL ANAESTHESIA
     Dosage: DENTAL
     Route: 004
     Dates: start: 20090130
  2. SEPTOCAINE WITH EPINEPHRINE (ARTICAINE HYDROCHLORIDE AND EPINEPHRINE B [Concomitant]
  3. CILEST (ETHINYLESTRADIOL, NORGESTIMATE) [Concomitant]

REACTIONS (5)
  - ASTHENIA [None]
  - CHILLS [None]
  - HEADACHE [None]
  - OEDEMA GENITAL [None]
  - PYREXIA [None]
